FAERS Safety Report 7561130-9 (Version None)
Quarter: 2011Q2

REPORT INFORMATION
  Report Type: 
  Country: None (occurrence: None)
  Receive Date: 20110621
  Receipt Date: 20110616
  Transmission Date: 20111010
  Serious: Yes (Hospitalization, Other)
  Sender: FDA-Public Use
  Company Number: US-ELI_LILLY_AND_COMPANY-US201010001558

PATIENT
  Sex: Female
  Weight: 83.9 kg

DRUGS (20)
  1. BYETTA [Suspect]
     Dosage: UNK
     Dates: start: 20080125, end: 20080127
  2. FOLIC ACID [Concomitant]
     Indication: RED BLOOD CELL COUNT DECREASED
     Dosage: UNK
     Dates: start: 20041214, end: 20090625
  3. HYDROCODONE W/HOMATROPINE [Concomitant]
     Indication: COUGH
     Dosage: UNK
     Dates: start: 20080823, end: 20090311
  4. AZITHROMYCIN [Concomitant]
     Indication: INFECTION
     Dosage: UNK
     Dates: start: 20080823, end: 20080829
  5. ZITHROMAX [Concomitant]
     Indication: UPPER RESPIRATORY TRACT INFECTION
     Dosage: UNK
     Dates: start: 20080823, end: 20080913
  6. ACTONEL [Concomitant]
     Indication: OSTEOPOROSIS
     Dosage: UNK
     Dates: start: 20080823, end: 20080913
  7. BONIVA [Concomitant]
     Indication: OSTEOPOROSIS
  8. METFORMIN HCL [Concomitant]
     Indication: DIABETES MELLITUS
     Dosage: UNK
     Dates: start: 20040215, end: 20081110
  9. BYETTA [Suspect]
     Dosage: UNK
     Dates: start: 20080102, end: 20080110
  10. BYETTA [Suspect]
     Dosage: UNK
     Dates: start: 20080525, end: 20080527
  11. DIOVAN [Concomitant]
     Indication: HYPERTENSION
     Dosage: UNK
     Dates: start: 20080913
  12. LIPITOR [Concomitant]
     Indication: HYPERCHOLESTEROLAEMIA
  13. BYETTA [Suspect]
     Dosage: UNK
     Dates: start: 20080413, end: 20080415
  14. BYETTA [Suspect]
     Dosage: UNK
     Dates: start: 20080621, end: 20080623
  15. BYETTA [Suspect]
     Indication: DIABETES MELLITUS
     Dosage: 5 UG, BID
     Dates: start: 20070821, end: 20070827
  16. LEVOTHYROXINE SODIUM [Concomitant]
     Indication: HYPOTHYROIDISM
     Dosage: UNK
     Dates: start: 20060731, end: 20090625
  17. ADVAIR DISKUS 100/50 [Concomitant]
     Indication: UPPER RESPIRATORY TRACT INFECTION
     Dosage: UNK
     Dates: start: 20080823, end: 20080913
  18. BYETTA [Suspect]
     Dosage: UNK
     Dates: start: 20080817, end: 20080913
  19. LISINOPRIL [Concomitant]
     Indication: HYPERTENSION
     Dosage: UNK
     Dates: start: 20080111, end: 20081009
  20. SIMVASTATIN [Concomitant]
     Indication: HYPERCHOLESTEROLAEMIA
     Dosage: UNK
     Dates: start: 20080411, end: 20081009

REACTIONS (11)
  - PANCREAS INFECTION [None]
  - PLEURAL EFFUSION [None]
  - VENOUS THROMBOSIS LIMB [None]
  - MASS [None]
  - DYSPEPSIA [None]
  - PANCREATITIS NECROTISING [None]
  - HAEMATURIA [None]
  - RENAL CYST [None]
  - PANCREATITIS ACUTE [None]
  - SPLENIC VEIN OCCLUSION [None]
  - GASTRITIS [None]
